FAERS Safety Report 23987919 (Version 1)
Quarter: 2024Q2

REPORT INFORMATION
  Report Type: Report from Study
  Country: DE (occurrence: DE)
  Receive Date: 20240619
  Receipt Date: 20240619
  Transmission Date: 20240716
  Serious: Yes (Hospitalization)
  Sender: FDA-Public Use
  Company Number: DE-JNJFOC-20231132687

PATIENT
  Sex: Female

DRUGS (13)
  1. SIMPONI [Suspect]
     Active Substance: GOLIMUMAB
     Indication: Rheumatoid arthritis
     Route: 058
     Dates: start: 201601
  2. LEFLUNOMIDE [Suspect]
     Active Substance: LEFLUNOMIDE
     Indication: Rheumatoid arthritis
     Dates: end: 202306
  3. LEFLUNOMIDE [Suspect]
     Active Substance: LEFLUNOMIDE
     Dosage: RESTARTED ON /OCT/2023
     Route: 065
  4. CHOLECALCIFEROL [Concomitant]
     Active Substance: CHOLECALCIFEROL
  5. PHENPROCOUMON [Concomitant]
     Active Substance: PHENPROCOUMON
  6. RAMIPRIL [Concomitant]
     Active Substance: RAMIPRIL
  7. PIROXICAM [Concomitant]
     Active Substance: PIROXICAM
  8. PIROXICAM [Concomitant]
     Active Substance: PIROXICAM
  9. INSULIN GLARGINE [Concomitant]
     Active Substance: INSULIN GLARGINE
  10. METOPROLOL [Concomitant]
     Active Substance: METOPROLOL
  11. PANTOPRAZOLE SODIUM [Concomitant]
     Active Substance: PANTOPRAZOLE SODIUM
  12. THEOPHYLLINE [Concomitant]
     Active Substance: THEOPHYLLINE
  13. TORSEMIDE [Concomitant]
     Active Substance: TORSEMIDE

REACTIONS (4)
  - Anaphylactic shock [Unknown]
  - Infective exacerbation of chronic obstructive airways disease [Unknown]
  - Staphylococcal sepsis [Not Recovered/Not Resolved]
  - Disturbance in attention [Not Recovered/Not Resolved]

NARRATIVE: CASE EVENT DATE: 20230626
